FAERS Safety Report 8373001-9 (Version None)
Quarter: 2012Q2

REPORT INFORMATION
  Report Type: 
  Country: None (occurrence: None)
  Receive Date: 20120521
  Receipt Date: 20110331
  Transmission Date: 20120825
  Serious: No
  Sender: FDA-Public Use
  Company Number: US-ASTRAZENECA-2011SE21505

PATIENT
  Age: 44 Year
  Sex: Female

DRUGS (2)
  1. PRILOSEC OTC [Suspect]
     Indication: HIATUS HERNIA
     Route: 048
  2. DIAZEPAM [Interacting]
     Dosage: UNKNOWN

REACTIONS (2)
  - BLOOD GLUCOSE INCREASED [None]
  - LABELLED DRUG-DRUG INTERACTION MEDICATION ERROR [None]
